FAERS Safety Report 5824767-0 (Version None)
Quarter: 2008Q3

REPORT INFORMATION
  Report Type: 
  Country: None (occurrence: None)
  Receive Date: 20080728
  Receipt Date: 20080717
  Transmission Date: 20090109
  Serious: Yes (Hospitalization)
  Sender: FDA-Public Use
  Company Number: ES-AMGEN-UK283832

PATIENT
  Age: 72 Year
  Sex: Female

DRUGS (6)
  1. MIMPARA [Suspect]
     Indication: HYPERPARATHYROIDISM SECONDARY
     Route: 048
     Dates: start: 20060519
  2. NEORECORMON [Concomitant]
  3. SERTRALINE [Concomitant]
  4. OMEPRAZOLE [Concomitant]
  5. SEVELAMER HCL [Concomitant]
  6. ATORVASTATIN CALCIUM [Concomitant]

REACTIONS (2)
  - PORPHYRIA [None]
  - RASH PAPULAR [None]
